FAERS Safety Report 17054900 (Version 1)
Quarter: 2019Q4

REPORT INFORMATION
  Report Type: Spontaneous
  Country: US (occurrence: US)
  Receive Date: 20191120
  Receipt Date: 20191120
  Transmission Date: 20200122
  Serious: No
  Sender: FDA-Public Use
  Company Number: US-009507513-1911USA007537

PATIENT
  Sex: Female
  Weight: 115.19 kg

DRUGS (1)
  1. NEXPLANON [Suspect]
     Active Substance: ETONOGESTREL
     Dosage: IMPLANTED ABOUT 3 YEARS AGO
     Route: 059
     Dates: start: 2016

REACTIONS (1)
  - Back pain [Not Recovered/Not Resolved]
